FAERS Safety Report 7935405-5 (Version None)
Quarter: 2011Q4

REPORT INFORMATION
  Report Type: 
  Country: None (occurrence: None)
  Receive Date: 20111122
  Receipt Date: 20111117
  Transmission Date: 20120403
  Serious: Yes (Life-Threatening, Hospitalization, Disabling)
  Sender: FDA-Public Use
  Company Number: CA-MERCK-1111USA02287

PATIENT
  Age: 71 Year
  Sex: Male
  Weight: 75 kg

DRUGS (2)
  1. JANUMET [Suspect]
     Route: 048
  2. NORVASC [Concomitant]
     Route: 048

REACTIONS (8)
  - LUNG INFECTION [None]
  - DYSPNOEA EXERTIONAL [None]
  - FALL [None]
  - HYPOPHAGIA [None]
  - PNEUMONIA [None]
  - DYSPNOEA [None]
  - LACTIC ACIDOSIS [None]
  - DECREASED APPETITE [None]
